FAERS Safety Report 20000963 (Version 8)
Quarter: 2022Q4

REPORT INFORMATION
  Report Type: Report from Study
  Country: US (occurrence: US)
  Receive Date: 20211027
  Receipt Date: 20221228
  Transmission Date: 20230113
  Serious: Yes (Other)
  Sender: FDA-Public Use
  Company Number: US-NOVARTISPH-NVSC2021US242486

PATIENT
  Age: 44 Year
  Sex: Female

DRUGS (1)
  1. KESIMPTA [Suspect]
     Active Substance: OFATUMUMAB
     Indication: Multiple sclerosis
     Dosage: 20 MG, QMO
     Route: 058
     Dates: start: 20211015

REACTIONS (17)
  - Multiple sclerosis relapse [Unknown]
  - Vertigo [Not Recovered/Not Resolved]
  - Seizure [Unknown]
  - Bone pain [Unknown]
  - Vomiting [Recovered/Resolved]
  - Vomiting [Not Recovered/Not Resolved]
  - Pain [Unknown]
  - Diarrhoea [Recovered/Resolved]
  - Immunoglobulins abnormal [Unknown]
  - Influenza like illness [Unknown]
  - Fall [Unknown]
  - Vitamin D decreased [Unknown]
  - Peripheral swelling [Unknown]
  - Blood glucose decreased [Unknown]
  - Blood sodium decreased [Unknown]
  - Skin discolouration [Unknown]
  - Skeletal injury [Unknown]

NARRATIVE: CASE EVENT DATE: 20211017
